FAERS Safety Report 15370695 (Version 1)
Quarter: 2018Q3

REPORT INFORMATION
  Report Type: Spontaneous
  Country: FR (occurrence: FR)
  Receive Date: 20180911
  Receipt Date: 20180911
  Transmission Date: 20181010
  Serious: Yes (Hospitalization)
  Sender: FDA-Public Use
  Company Number: FR-TEVA-2018-FR-953625

PATIENT
  Age: 65 Year
  Sex: Female

DRUGS (10)
  1. ROSUVASTATINE [Concomitant]
     Active Substance: ROSUVASTATIN
     Dosage: 10 MILLIGRAM DAILY;
     Route: 048
  2. LERCANIDIPINE (CHLORHYDRATE DE) [Concomitant]
     Active Substance: LERCANIDIPINE HYDROCHLORIDE
     Dosage: 10 MILLIGRAM DAILY;
     Route: 048
  3. HYDROCHLOROTHIAZIDE. [Concomitant]
     Active Substance: HYDROCHLOROTHIAZIDE
     Dosage: .25 DOSAGE FORMS DAILY;
     Route: 048
  4. EPIRUBICINE [Suspect]
     Active Substance: EPIRUBICIN
     Indication: BREAST CANCER
     Route: 042
     Dates: start: 20171213, end: 20180103
  5. KARDEGIC [Concomitant]
     Active Substance: ASPIRIN DL-LYSINE
     Dosage: 1 DOSAGE FORMS DAILY;
     Route: 048
  6. RILMENIDINE [Concomitant]
     Active Substance: RILMENIDINE
     Dosage: 1 MILLIGRAM DAILY;
     Route: 048
  7. FLUOROURACILE [Suspect]
     Active Substance: FLUOROURACIL
     Indication: BREAST CANCER
     Route: 042
     Dates: start: 20171213, end: 20180103
  8. CYCLOPHOSPHAMIDE. [Suspect]
     Active Substance: CYCLOPHOSPHAMIDE
     Indication: BREAST CANCER
     Route: 042
     Dates: start: 20171213, end: 20180103
  9. LEVOTHYROXINE SODIQUE [Concomitant]
     Active Substance: LEVOTHYROXINE SODIUM
     Dosage: 1 DOSAGE FORMS DAILY;
     Route: 048
  10. BISOPROLOL (FUMARATE ACIDE DE) [Concomitant]
     Active Substance: BISOPROLOL FUMARATE
     Dosage: 10 MILLIGRAM DAILY;
     Route: 048

REACTIONS (1)
  - Febrile neutropenia [Recovered/Resolved]

NARRATIVE: CASE EVENT DATE: 20180114
